FAERS Safety Report 5997008-1 (Version None)
Quarter: 2008Q4

REPORT INFORMATION
  Report Type: 
  Country: None (occurrence: None)
  Receive Date: 20081212
  Receipt Date: 20081029
  Transmission Date: 20090506
  Serious: No
  Sender: FDA-Public Use
  Company Number: US-ABBOTT-08P-163-0484791-00

PATIENT
  Sex: Male
  Weight: 117.13 kg

DRUGS (4)
  1. HUMIRA [Suspect]
     Indication: ANKYLOSING SPONDYLITIS
     Route: 058
     Dates: start: 20080601
  2. HYDRALAZINE HYDROCHLORIDE [Concomitant]
     Indication: HYPERTENSION
     Route: 048
  3. NAPROXEN SODIUM [Concomitant]
     Indication: SLEEP DISORDER THERAPY
     Route: 048
  4. TYLOX [Concomitant]
     Indication: PAIN
     Route: 048

REACTIONS (2)
  - FUNGAL INFECTION [None]
  - SKIN EXFOLIATION [None]
